FAERS Safety Report 4691994-8 (Version None)
Quarter: 2005Q2

REPORT INFORMATION
  Report Type: 
  Country: None (occurrence: None)
  Receive Date: 20050616
  Receipt Date: 20050616
  Transmission Date: 20051028
  Serious: No
  Sender: FDA-Public Use
  Company Number: None

PATIENT
  Sex: Male
  Weight: 113.3993 kg

DRUGS (3)
  1. MULTIHANCE [Suspect]
     Indication: DIZZINESS
     Dosage: 20ML    ONCE   INTRAVENOU
     Route: 042
     Dates: start: 20050517, end: 20050517
  2. MULTIHANCE [Suspect]
     Indication: NUCLEAR MAGNETIC RESONANCE IMAGING
     Dosage: 20ML    ONCE   INTRAVENOU
     Route: 042
     Dates: start: 20050517, end: 20050517
  3. MULTIHANCE [Suspect]
     Indication: PARAESTHESIA
     Dosage: 20ML    ONCE   INTRAVENOU
     Route: 042
     Dates: start: 20050517, end: 20050517

REACTIONS (5)
  - INJECTION SITE ERYTHEMA [None]
  - INJECTION SITE HAEMORRHAGE [None]
  - INJECTION SITE REACTION [None]
  - INJECTION SITE SWELLING [None]
  - INJECTION SITE VESICLES [None]
